FAERS Safety Report 15665566 (Version 1)
Quarter: 2018Q4

REPORT INFORMATION
  Report Type: Spontaneous
  Country: US (occurrence: US)
  Receive Date: 20181119
  Receipt Date: 20181119
  Transmission Date: 20190205
  Serious: No
  Sender: FDA-Public Use
  Company Number: None

PATIENT
  Age: 54 Year
  Sex: Female

DRUGS (1)
  1. STELARA [Suspect]
     Active Substance: USTEKINUMAB
     Dates: start: 20181101, end: 20181116

REACTIONS (4)
  - Pruritus [None]
  - Acne cystic [None]
  - Rash [None]
  - Influenza like illness [None]

NARRATIVE: CASE EVENT DATE: 20181111
